FAERS Safety Report 23771843 (Version 1)
Quarter: 2024Q2

REPORT INFORMATION
  Report Type: Spontaneous
  Country: US (occurrence: US)
  Receive Date: 20240423
  Receipt Date: 20240423
  Transmission Date: 20240716
  Serious: No
  Sender: FDA-Public Use
  Company Number: US-AJANTA-2024AJA00011

PATIENT

DRUGS (1)
  1. CHOLESTYRAMINE [Suspect]
     Active Substance: CHOLESTYRAMINE
     Indication: Irritable bowel syndrome
     Route: 048

REACTIONS (3)
  - Product physical consistency issue [Unknown]
  - Product substitution issue [Unknown]
  - Drug ineffective for unapproved indication [Unknown]
